FAERS Safety Report 8508829-5 (Version None)
Quarter: 2012Q3

REPORT INFORMATION
  Report Type: 
  Country: None (occurrence: None)
  Receive Date: 20120713
  Receipt Date: 20120712
  Transmission Date: 20120928
  Serious: Yes (Other)
  Sender: FDA-Public Use
  Company Number: PL-PFIZER INC-2012105992

PATIENT
  Age: 3 Year
  Sex: Male

DRUGS (6)
  1. ANTI-THYMOCYTE GLOBULIN NOS [Suspect]
     Indication: BONE MARROW TRANSPLANT
     Dosage: 3X20 MG/KG BODY WEIGHT, UNK
  2. BUSULFAN [Suspect]
     Indication: BONE MARROW TRANSPLANT
     Dosage: 2X1 MG/KG BODY WEIGHT
     Route: 042
  3. METHYLPREDNISOLONE [Concomitant]
     Indication: GRAFT VERSUS HOST DISEASE
  4. CYCLOSPORINE [Concomitant]
     Indication: GRAFT VERSUS HOST DISEASE
  5. ORTHOCLONE OKT3 [Concomitant]
     Indication: GRAFT VERSUS HOST DISEASE
  6. FLUDARABINE PHOSPHATE [Suspect]
     Indication: BONE MARROW TRANSPLANT
     Dosage: 5X30 MG/M {SUP}2{/SUP}

REACTIONS (3)
  - LEUKOPENIA [None]
  - AGRANULOCYTOSIS [None]
  - MUCOSAL INFLAMMATION [None]
